FAERS Safety Report 4748773-2 (Version None)
Quarter: 2005Q3

REPORT INFORMATION
  Report Type: 
  Country: None (occurrence: None)
  Receive Date: 20050812
  Receipt Date: 20050620
  Transmission Date: 20060218
  Serious: Yes (Other)
  Sender: FDA-Public Use
  Company Number: 408542

PATIENT
  Age: 50 Year
  Sex: Female

DRUGS (3)
  1. PEGASYS [Suspect]
     Indication: HEPATITIS C
     Dosage: OTHER
     Route: 050
     Dates: start: 20050311
  2. COPEGUS [Suspect]
     Indication: HEPATITIS C
     Dosage: ORAL
     Route: 048
     Dates: start: 20050311
  3. ALEVE [Concomitant]

REACTIONS (5)
  - DYSPNOEA [None]
  - FATIGUE [None]
  - HAEMOGLOBIN DECREASED [None]
  - HYPOTRICHOSIS [None]
  - WHITE BLOOD CELL COUNT DECREASED [None]
